FAERS Safety Report 12331936 (Version 2)
Quarter: 2016Q2

REPORT INFORMATION
  Report Type: Spontaneous
  Country: US (occurrence: US)
  Receive Date: 20160504
  Receipt Date: 20160601
  Transmission Date: 20160815
  Serious: No
  Sender: FDA-Public Use
  Company Number: US-PFIZER INC-2016196374

PATIENT
  Age: 52 Year
  Sex: Female
  Weight: 78 kg

DRUGS (12)
  1. METHYLCOBALAMIN. [Concomitant]
     Active Substance: METHYLCOBALAMIN
     Indication: NERVOUS SYSTEM DISORDER
     Dosage: 25 MG, INJECTION 3 TIMES A WEEK
     Dates: start: 2009
  2. METANX [Concomitant]
     Active Substance: LEVOMEFOLATE CALCIUM\METHYLCOBALAMIN\PYRIDOXAL PHOSPHATE ANHYDROUS
     Indication: METABOLIC DISORDER
     Dosage: 2X/DAY
     Dates: start: 2010
  3. GENOTROPIN [Suspect]
     Active Substance: SOMATROPIN
     Indication: GROWTH HORMONE DEFICIENCY
     Dosage: 0.4 MG, 1X/DAY
     Dates: start: 200902
  4. ARMOUR THYROID [Concomitant]
     Active Substance: THYROID, PORCINE
     Indication: THYROIDECTOMY
  5. ATENOLOL. [Concomitant]
     Active Substance: ATENOLOL
     Indication: HYPERTENSION
     Dosage: 25 MG, 1X/DAY BY MOUTH PILL
     Route: 048
     Dates: start: 2009
  6. ARTHROTEC [Concomitant]
     Active Substance: DICLOFENAC SODIUM\MISOPROSTOL
     Dosage: UNK, 1X/DAY
  7. MAGNESIUM [Concomitant]
     Active Substance: MAGNESIUM
     Indication: FIBROMYALGIA
     Dosage: 84 MG, 3X/DAY PILL BY MOUTH
     Route: 048
     Dates: start: 2009
  8. ARMOUR THYROID [Concomitant]
     Active Substance: THYROID, PORCINE
     Indication: THYROID CANCER
     Dosage: 60 MG, 1X/DAY BY MOUTH PILL
     Route: 048
  9. VITAMIN B12 [Concomitant]
     Active Substance: CYANOCOBALAMIN
  10. DHEA [Concomitant]
     Active Substance: PRASTERONE
     Indication: METABOLIC DISORDER
     Dosage: 25 MG, 1X/DAY BY MOUTH
     Route: 048
     Dates: start: 2009
  11. DICLOFENAC [Concomitant]
     Active Substance: DICLOFENAC
     Indication: FIBROMYALGIA
     Dosage: 75 MG, 2X/DAY PILL BY MOUTH
     Route: 048
     Dates: start: 2009
  12. DICLOFENAC [Concomitant]
     Active Substance: DICLOFENAC
     Indication: PAIN

REACTIONS (5)
  - Incorrect dose administered [Recovered/Resolved]
  - Weight increased [Not Recovered/Not Resolved]
  - Wrong technique in product usage process [Recovered/Resolved]
  - Therapeutic response unexpected [Recovered/Resolved]
  - Pre-existing condition improved [Recovered/Resolved]

NARRATIVE: CASE EVENT DATE: 2009
